FAERS Safety Report 11980308 (Version 1)
Quarter: 2016Q1

REPORT INFORMATION
  Report Type: Spontaneous
  Country: US (occurrence: US)
  Receive Date: 20160129
  Receipt Date: 20160129
  Transmission Date: 20160526
  Serious: No
  Sender: FDA-Public Use
  Company Number: US-PFIZER INC-2016009548

PATIENT
  Age: 65 Year
  Sex: Male
  Weight: 90.72 kg

DRUGS (1)
  1. VIAGRA [Suspect]
     Active Substance: SILDENAFIL CITRATE
     Indication: ERECTILE DYSFUNCTION
     Dosage: 100 MG, SOMETIMES ONCE A WEEK OR SOMETIMES ONCE A MONTH OR SOMETIMES A LITTLE BIT LONGER

REACTIONS (3)
  - Nasal congestion [Unknown]
  - Headache [Unknown]
  - Dyspnoea [Unknown]
